FAERS Safety Report 8051481-6 (Version None)
Quarter: 2012Q1

REPORT INFORMATION
  Report Type: 
  Country: None (occurrence: None)
  Receive Date: 20120117
  Receipt Date: 20120106
  Transmission Date: 20120608
  Serious: Yes (Hospitalization)
  Sender: FDA-Public Use
  Company Number: JP-ASTRAZENECA-2011SE78288

PATIENT
  Age: 84 Year
  Sex: Female

DRUGS (1)
  1. ATENOLOL [Suspect]
     Indication: TACHYCARDIA
     Dosage: DOSE UNKNOWN
     Route: 048

REACTIONS (1)
  - BRADYCARDIA [None]
